FAERS Safety Report 6413055-X (Version None)
Quarter: 2009Q4

REPORT INFORMATION
  Report Type: 
  Country: None (occurrence: None)
  Receive Date: 20091023
  Receipt Date: 20091023
  Transmission Date: 20100525
  Serious: Yes (Other)
  Sender: FDA-Public Use
  Company Number: None

PATIENT
  Age: 8 Year
  Sex: Male
  Weight: 21.7727 kg

DRUGS (3)
  1. VALPROIC ACID [Suspect]
     Indication: ATTENTION DEFICIT/HYPERACTIVITY DISORDER
     Dosage: 1 TABLET AT BEDTIME DAILY
     Dates: start: 20091014, end: 20091022
  2. VALPROIC ACID [Suspect]
     Indication: AUTISM
     Dosage: 1 TABLET AT BEDTIME DAILY
     Dates: start: 20091014, end: 20091022
  3. VALPROIC ACID [Suspect]
     Indication: OPPOSITIONAL DEFIANT DISORDER
     Dosage: 1 TABLET AT BEDTIME DAILY
     Dates: start: 20091014, end: 20091022

REACTIONS (10)
  - AGGRESSION [None]
  - ANXIETY [None]
  - ATTENTION DEFICIT/HYPERACTIVITY DISORDER [None]
  - DECREASED EYE CONTACT [None]
  - DISTURBANCE IN ATTENTION [None]
  - INTENTIONAL SELF-INJURY [None]
  - JUDGEMENT IMPAIRED [None]
  - OPPOSITIONAL DEFIANT DISORDER [None]
  - PRODUCT SUBSTITUTION ISSUE [None]
  - TENSION [None]
